FAERS Safety Report 7040434-2 (Version None)
Quarter: 2010Q4

REPORT INFORMATION
  Report Type: 
  Country: None (occurrence: None)
  Receive Date: 20101008
  Receipt Date: 20101008
  Transmission Date: 20110411
  Serious: Yes (Life-Threatening, Hospitalization, Disabling, Other)
  Sender: FDA-Public Use
  Company Number: None

PATIENT
  Age: 36 Year
  Sex: Male
  Weight: 95.2554 kg

DRUGS (5)
  1. SEROQUEL [Suspect]
     Dosage: 50 DAILY
  2. ZYPREXA [Suspect]
     Dosage: 15 DAILY
  3. BUPROPION [Suspect]
     Dosage: 150 DAILY
  4. TRIHEXPHENIDYL [Suspect]
     Dosage: 5 DAILY
  5. DIPHENHYDRAMINE [Suspect]
     Dosage: 50 DAILY

REACTIONS (8)
  - DEPRESSION [None]
  - FALL [None]
  - FEELING ABNORMAL [None]
  - HEADACHE [None]
  - OROPHARYNGEAL PAIN [None]
  - PAIN [None]
  - SUICIDAL IDEATION [None]
  - TREMOR [None]
